FAERS Safety Report 25979095 (Version 1)
Quarter: 2025Q4

REPORT INFORMATION
  Report Type: Spontaneous
  Country: US (occurrence: None)
  Receive Date: 20251029
  Receipt Date: 20251029
  Transmission Date: 20260117
  Serious: Yes (Death, Hospitalization)
  Sender: FDA-CTU
  Company Number: None

PATIENT
  Age: 72 Year
  Sex: Male

DRUGS (13)
  1. OFEV [Suspect]
     Active Substance: NINTEDANIB
     Indication: Idiopathic pulmonary fibrosis
     Dosage: 150MG BID ORAL
     Route: 048
     Dates: start: 20220317, end: 20251008
  2. BENZONATATE [Concomitant]
     Active Substance: BENZONATATE
  3. PROCHLORPERAZINE [Concomitant]
     Active Substance: PROCHLORPERAZINE
  4. morphinee [Concomitant]
  5. haloperidol oral conc [Concomitant]
  6. bisacodyl rect supp [Concomitant]
  7. MIRALAX [Concomitant]
     Active Substance: POLYETHYLENE GLYCOL 3350
  8. SENOKOT [Concomitant]
     Active Substance: SENNOSIDES
  9. LACTULOSE [Concomitant]
     Active Substance: LACTULOSE
  10. ONDANSETRON [Concomitant]
     Active Substance: ONDANSETRON
  11. NARCAN [Concomitant]
     Active Substance: NALOXONE HYDROCHLORIDE
  12. PANTOPRAZOLE [Concomitant]
     Active Substance: PANTOPRAZOLE
  13. GUAIFENESIN AC [Concomitant]
     Active Substance: CODEINE PHOSPHATE\GUAIFENESIN

REACTIONS (6)
  - Acute respiratory failure [None]
  - Respiratory failure [None]
  - Respiratory failure [None]
  - Idiopathic pulmonary fibrosis [None]
  - Disease progression [None]
  - Assisted suicide [None]

NARRATIVE: CASE EVENT DATE: 20251001
